FAERS Safety Report 4506874-8 (Version None)
Quarter: 2004Q4

REPORT INFORMATION
  Report Type: 
  Country: None (occurrence: None)
  Receive Date: 20041117
  Receipt Date: 20041104
  Transmission Date: 20050328
  Serious: Yes (Death, Hospitalization)
  Sender: FDA-Public Use
  Company Number: 2004240717JP

PATIENT
  Age: 10 Year
  Sex: Male
  Weight: 50.4 kg

DRUGS (7)
  1. GENOTROPIN [Suspect]
     Indication: HYPOPITUITARISM
     Dosage: SEE IMAGE
     Route: 058
     Dates: start: 20030805, end: 20040122
  2. GENOTROPIN [Suspect]
     Indication: HYPOPITUITARISM
     Dosage: SEE IMAGE
     Route: 058
     Dates: start: 20021205
  3. SOMATROPIN (SOMATROPIN) [Suspect]
     Indication: HYPOPITUITARISM
     Dosage: 1.33 MG (1.33 MG, DAILY), SUBCUTANEOUS
     Route: 058
     Dates: start: 20000613, end: 20021204
  4. PHENYTOIN [Suspect]
     Indication: EPILEPSY
     Dosage: 150 MG (75 MG, BID), ORAL
     Route: 048
     Dates: start: 19990312
  5. DESMOPRESSIN ACETATE (DESMOPRESSIN ACETATE) [Suspect]
     Indication: DIABETES INSIPIDUS
     Dosage: 10 MCG (5 MCG, BID), INHALATION
     Route: 055
     Dates: start: 19990312
  6. CORTISONE ACETATE [Suspect]
     Indication: ADRENAL INSUFFICIENCY
     Dosage: 12.5 MG (12.5 MG, DAILY), ORAL
     Route: 048
     Dates: start: 19990312
  7. LEVOTHYROXINE SODIUM [Suspect]
     Indication: HYPOTHYROIDISM
     Dosage: 50 MCG (50 MCG, DAILY), ORAL
     Route: 048
     Dates: start: 19990312

REACTIONS (7)
  - ABDOMINAL CAVITY DRAINAGE [None]
  - BRAIN OEDEMA [None]
  - CRANIOPHARYNGIOMA [None]
  - INTRACRANIAL PRESSURE INCREASED [None]
  - INTRACRANIAL TUMOUR HAEMORRHAGE [None]
  - NEOPLASM RECURRENCE [None]
  - THORACIC CAVITY DRAINAGE [None]
